FAERS Safety Report 8911993 (Version 3)
Quarter: 2012Q4

REPORT INFORMATION
  Report Type: 
  Country: US (occurrence: US)
  Receive Date: 20121116
  Receipt Date: 20121226
  Transmission Date: 20130627
  Serious: No
  Sender: FDA-Public Use
  Company Number: US-PFIZER INC-2012285883

PATIENT
  Age: 76 Year
  Sex: Male
  Weight: 100.68 kg

DRUGS (3)
  1. LYRICA [Suspect]
     Indication: NERVE DAMAGE
     Dosage: 150 mg (three 50mg), 1x/day at night about 5 to 10mins before go to bed
     Route: 048
     Dates: start: 2011
  2. ADVIL [Concomitant]
     Dosage: UNK, as needed
  3. ALEVE [Concomitant]
     Dosage: UNK, as needed

REACTIONS (4)
  - Tremor [Unknown]
  - Balance disorder [Unknown]
  - Weight increased [Not Recovered/Not Resolved]
  - Therapeutic response unexpected [Not Recovered/Not Resolved]
